FAERS Safety Report 12746304 (Version 1)
Quarter: 2016Q3

REPORT INFORMATION
  Report Type: Spontaneous
  Country: US (occurrence: US)
  Receive Date: 20160915
  Receipt Date: 20160915
  Transmission Date: 20161109
  Serious: No
  Sender: FDA-Public Use
  Company Number: US-DRREDDYS-USA/USA/16/0081558

PATIENT
  Age: 52 Year
  Sex: Male

DRUGS (3)
  1. GEMCITABINE [Suspect]
     Active Substance: GEMCITABINE\GEMCITABINE HYDROCHLORIDE
     Indication: TRANSITIONAL CELL CARCINOMA
     Dosage: DAYS 1 AND 8 EVERY 21 DAYS
  2. CISPLATIN. [Suspect]
     Active Substance: CISPLATIN
     Indication: TRANSITIONAL CELL CARCINOMA
     Dosage: EVERY 21 DAYS
  3. LACOSAMIDE. [Concomitant]
     Active Substance: LACOSAMIDE
     Indication: NEUROPATHY PERIPHERAL

REACTIONS (2)
  - Nausea [Unknown]
  - Vomiting [Unknown]
